FAERS Safety Report 14960064 (Version 4)
Quarter: 2018Q4

REPORT INFORMATION
  Report Type: Report from Study
  Country: AU (occurrence: AU)
  Receive Date: 20180531
  Receipt Date: 20181228
  Transmission Date: 20190204
  Serious: Yes (Hospitalization)
  Sender: FDA-Public Use
  Company Number: AU-BIOGEN-2016BI00247113

PATIENT
  Age: 58 Year
  Sex: Female

DRUGS (2)
  1. TYSABRI [Suspect]
     Active Substance: NATALIZUMAB
     Dosage: INFUSED OVER 1HOUR
     Route: 042
  2. TYSABRI [Suspect]
     Active Substance: NATALIZUMAB
     Indication: MULTIPLE SCLEROSIS
     Dosage: INFUSED OVER 1HOUR
     Route: 042
     Dates: start: 20160625

REACTIONS (13)
  - Headache [Unknown]
  - Decreased immune responsiveness [Not Recovered/Not Resolved]
  - Thyroid function test abnormal [Unknown]
  - Lymphocyte count increased [Recovered/Resolved]
  - Body temperature abnormal [Recovered/Resolved]
  - Fatigue [Unknown]
  - Catheter site pain [Unknown]
  - Prescribed underdose [Unknown]
  - Stress [Not Recovered/Not Resolved]
  - Central nervous system lesion [Unknown]
  - Bronchiectasis [Recovered/Resolved]
  - Arthralgia [Recovered/Resolved]
  - Blood iron decreased [Not Recovered/Not Resolved]

NARRATIVE: CASE EVENT DATE: 2016
